FAERS Safety Report 15452127 (Version 1)
Quarter: 2018Q4

REPORT INFORMATION
  Report Type: Spontaneous
  Country: US (occurrence: US)
  Receive Date: 20181001
  Receipt Date: 20181001
  Transmission Date: 20190204
  Serious: No
  Sender: FDA-Public Use
  Company Number: US-NEOS THERAPEUTICS, LP-2018NEO00103

PATIENT
  Sex: Female
  Weight: 19.5 kg

DRUGS (3)
  1. COTEMPLA XR-ODT [Suspect]
     Active Substance: METHYLPHENIDATE
     Dosage: 34 MG, 1X/DAY
     Route: 048
     Dates: start: 201808
  2. MELATONIN [Concomitant]
     Active Substance: MELATONIN
  3. COTEMPLA XR-ODT [Suspect]
     Active Substance: METHYLPHENIDATE
     Indication: ATTENTION DEFICIT/HYPERACTIVITY DISORDER
     Dosage: 17.3 MG, 1X/DAY
     Route: 048
     Dates: start: 201802, end: 201808

REACTIONS (2)
  - Therapeutic response shortened [None]
  - Disturbance in attention [Not Recovered/Not Resolved]

NARRATIVE: CASE EVENT DATE: 2018
